FAERS Safety Report 16792411 (Version 2)
Quarter: 2019Q3

REPORT INFORMATION
  Report Type: Spontaneous
  Country: RU (occurrence: RU)
  Receive Date: 20190910
  Receipt Date: 20190913
  Transmission Date: 20191005
  Serious: Yes (Other)
  Sender: FDA-Public Use
  Company Number: PHHY2019RU209327

PATIENT
  Age: 37 Year
  Sex: Female

DRUGS (1)
  1. DUOTRAV (ALC) [Suspect]
     Active Substance: TIMOLOL MALEATE\TRAVOPROST
     Indication: GLAUCOMA
     Route: 065
     Dates: start: 20190815, end: 20190816

REACTIONS (5)
  - Eyelid oedema [Recovering/Resolving]
  - Conjunctival hyperaemia [Recovering/Resolving]
  - Lacrimation increased [Recovering/Resolving]
  - Hypersensitivity [Recovering/Resolving]
  - Product quality issue [Unknown]

NARRATIVE: CASE EVENT DATE: 20190816
